FAERS Safety Report 20824726 (Version 1)
Quarter: 2022Q2

REPORT INFORMATION
  Report Type: Spontaneous
  Country: DK (occurrence: DK)
  Receive Date: 20220513
  Receipt Date: 20220513
  Transmission Date: 20220720
  Serious: Yes (Hospitalization)
  Sender: FDA-Public Use
  Company Number: None

PATIENT
  Age: 76 Year
  Sex: Male
  Weight: 87 kg

DRUGS (2)
  1. PREDNISOLONE [Suspect]
     Active Substance: PREDNISOLONE
     Indication: Pruritus
     Dosage: DOSAGE: UNSPECIFIED VARYING DOSAGE, 2 ROUNDS OF TREATMENT. STRENGTH: 25 MG , DURATION : 3 MONTHS
     Route: 048
     Dates: start: 202111, end: 202202
  2. CLOPIDOGREL ^ACTAVIS^ [Concomitant]
     Indication: Thrombosis prophylaxis
     Dates: start: 20150626

REACTIONS (2)
  - Oedema peripheral [Recovering/Resolving]
  - Renal disorder [Recovering/Resolving]

NARRATIVE: CASE EVENT DATE: 20220301
